FAERS Safety Report 4402226-X (Version None)
Quarter: 2004Q3

REPORT INFORMATION
  Report Type: 
  Country: None (occurrence: None)
  Receive Date: 20040720
  Receipt Date: 20040709
  Transmission Date: 20050211
  Serious: Yes (Death)
  Sender: FDA-Public Use
  Company Number: DE-ROCHE-373913

PATIENT
  Sex: Male

DRUGS (3)
  1. CYMEVENE [Suspect]
     Route: 048
  2. VALCYTE [Suspect]
     Route: 065
  3. IMMUNOSUPPRESSANTS NOS [Concomitant]
     Indication: RENAL TRANSPLANT

REACTIONS (2)
  - BONE MARROW DEPRESSION [None]
  - FUNGAEMIA [None]
